FAERS Safety Report 9124063 (Version 1)
Quarter: 2013Q1

REPORT INFORMATION
  Report Type: Spontaneous
  Country: US (occurrence: US)
  Receive Date: 20130116
  Receipt Date: 20130116
  Transmission Date: 20140127
  Serious: Yes (Hospitalization, Other)
  Sender: FDA-Public Use
  Company Number: US-MERCK-1301XAA004159

PATIENT
  Age: 74 Year
  Sex: Female

DRUGS (3)
  1. SINGULAIR [Suspect]
     Indication: PRODUCT USED FOR UNKNOWN INDICATION
  2. CRESTOR [Suspect]
     Indication: ASTHMA
  3. REMICADE [Suspect]
     Indication: RHEUMATOID ARTHRITIS
     Route: 042

REACTIONS (5)
  - Hepatic enzyme increased [Unknown]
  - Weight decreased [Unknown]
  - Visual acuity reduced [Unknown]
  - Pulmonary tuberculosis [Unknown]
  - Pulmonary embolism [Unknown]
